FAERS Safety Report 9818858 (Version 1)
Quarter: 2014Q1

REPORT INFORMATION
  Report Type: Spontaneous
  Country: US (occurrence: None)
  Receive Date: 20140114
  Receipt Date: 20140114
  Transmission Date: 20141002
  Serious: Yes (Other)
  Sender: FDA-Public Use
  Company Number: None

PATIENT
  Age: 46 Year
  Sex: Male
  Weight: 91.63 kg

DRUGS (3)
  1. SUBOXONE [Suspect]
     Dosage: 1  BID  ORAL
     Route: 048
  2. CELEXA [Concomitant]
  3. TESTOSTERONE [Concomitant]

REACTIONS (1)
  - Drug intolerance [None]
